FAERS Safety Report 15048603 (Version 3)
Quarter: 2018Q4

REPORT INFORMATION
  Report Type: Report from Study
  Country: None (occurrence: US)
  Receive Date: 20180622
  Receipt Date: 20181121
  Transmission Date: 20190204
  Serious: Yes (Other)
  Sender: FDA-Public Use
  Company Number: US-ABBVIE-18K-163-2290097-00

PATIENT
  Age: 59 Year
  Sex: Female
  Weight: 93.07 kg

DRUGS (5)
  1. HUMIRA [Suspect]
     Active Substance: ADALIMUMAB
     Indication: UVEITIS
     Route: 058
     Dates: start: 201801, end: 201806
  2. LEVOTHYROXINE. [Concomitant]
     Active Substance: LEVOTHYROXINE
     Indication: HYPOTHYROIDISM
  3. HUMIRA [Suspect]
     Active Substance: ADALIMUMAB
     Route: 058
     Dates: start: 2018
  4. KLONOPIN [Concomitant]
     Active Substance: CLONAZEPAM
     Indication: SLEEP DISORDER THERAPY
  5. LYRICA [Concomitant]
     Active Substance: PREGABALIN
     Indication: SLEEP DISORDER THERAPY

REACTIONS (20)
  - Nervous system disorder [Unknown]
  - Pre-existing condition improved [Recovering/Resolving]
  - Allergy to synthetic fabric [Recovered/Resolved]
  - Neuralgia [Unknown]
  - Throat tightness [Unknown]
  - Injection site discomfort [Not Recovered/Not Resolved]
  - Oropharyngeal pain [Unknown]
  - Vitreous floaters [Recovering/Resolving]
  - Therapeutic response unexpected [Recovering/Resolving]
  - Electric shock [Unknown]
  - Accident at work [Unknown]
  - Migraine [Unknown]
  - Hypersensitivity [Unknown]
  - Migraine with aura [Recovering/Resolving]
  - Intracranial pressure increased [Recovering/Resolving]
  - Central nervous system necrosis [Unknown]
  - Visual impairment [Unknown]
  - Pharyngeal oedema [Recovered/Resolved]
  - Eye swelling [Recovered/Resolved]
  - Headache [Recovering/Resolving]

NARRATIVE: CASE EVENT DATE: 201801
